FAERS Safety Report 8238140-1 (Version None)
Quarter: 2012Q1

REPORT INFORMATION
  Report Type: 
  Country: None (occurrence: None)
  Receive Date: 20120327
  Receipt Date: 20120316
  Transmission Date: 20120608
  Serious: No
  Sender: FDA-Public Use
  Company Number: US-B.I. PHARMACEUTICALS,INC./RIDGEFIELD-2011-BP-03344BP

PATIENT
  Sex: Male

DRUGS (5)
  1. GLUCOSAMINE CHONDROITIN [Concomitant]
     Indication: SUPPLEMENTATION THERAPY
     Route: 048
  2. PRADAXA [Suspect]
     Indication: ATRIAL FIBRILLATION
     Dosage: 300 MG
     Route: 048
  3. METOPROLOL TARTRATE [Concomitant]
     Indication: HYPERTENSION
     Dosage: 50 MG
     Route: 048
  4. FISH OIL [Concomitant]
     Indication: SUPPLEMENTATION THERAPY
     Route: 048
  5. ASPIRIN [Concomitant]
     Indication: SUPPLEMENTATION THERAPY
     Dosage: 81 MG
     Route: 048

REACTIONS (2)
  - ABNORMAL DREAMS [None]
  - HYPERTENSION [None]
